FAERS Safety Report 8134733-0 (Version None)
Quarter: 2012Q1

REPORT INFORMATION
  Report Type: 
  Country: None (occurrence: None)
  Receive Date: 20120214
  Receipt Date: 20120207
  Transmission Date: 20120608
  Serious: Yes (Other)
  Sender: FDA-Public Use
  Company Number: US-PFIZER INC-2012035669

PATIENT
  Sex: Female

DRUGS (5)
  1. MAGNESIUM GLUTAMATE [Suspect]
     Indication: ABDOMINAL PAIN UPPER
     Dosage: UNK
     Dates: start: 20120201
  2. LYRICA [Suspect]
     Indication: ANXIETY
     Dosage: 50 MG, 2X/DAY
     Dates: start: 20110101
  3. HYDROXYZINE PAMOATE [Suspect]
     Indication: MYALGIA
  4. LYRICA [Suspect]
     Dosage: 25 MG, 2X/DAY
     Dates: start: 20120201
  5. HYDROXYZINE PAMOATE [Suspect]
     Indication: HYPERHIDROSIS
     Dosage: UNK
     Dates: start: 20120201

REACTIONS (12)
  - GASTROINTESTINAL PAIN [None]
  - FEELING ABNORMAL [None]
  - ABDOMINAL PAIN UPPER [None]
  - HYPERHIDROSIS [None]
  - MYALGIA [None]
  - MALAISE [None]
  - NAUSEA [None]
  - INCORRECT DOSE ADMINISTERED [None]
  - VOMITING [None]
  - WEIGHT INCREASED [None]
  - HEADACHE [None]
  - DRUG INEFFECTIVE [None]
